FAERS Safety Report 17928191 (Version 1)
Quarter: 2020Q2

REPORT INFORMATION
  Report Type: Spontaneous
  Country: US (occurrence: US)
  Receive Date: 20200622
  Receipt Date: 20200622
  Transmission Date: 20200714
  Serious: No
  Sender: FDA-Public Use
  Company Number: None

PATIENT
  Age: 73 Year
  Sex: Male
  Weight: 229 kg

DRUGS (1)
  1. PIOGLITAZONE (PIOGLITAZONE HCL 45MG TAB) [Suspect]
     Active Substance: PIOGLITAZONE HYDROCHLORIDE
     Indication: OEDEMA
     Route: 048
     Dates: start: 20190521, end: 20200224

REACTIONS (3)
  - Treatment noncompliance [None]
  - Oedema [None]
  - Wrong schedule [None]

NARRATIVE: CASE EVENT DATE: 20200218
